FAERS Safety Report 11603321 (Version 2)
Quarter: 2015Q4

REPORT INFORMATION
  Report Type: Report from Study
  Country: US (occurrence: US)
  Receive Date: 20151007
  Receipt Date: 20151019
  Transmission Date: 20160304
  Serious: No
  Sender: FDA-Public Use
  Company Number: US-AMGEN-USASL2015103818

PATIENT
  Sex: Male

DRUGS (4)
  1. ENBREL [Suspect]
     Active Substance: ETANERCEPT
     Indication: ACUTE LEUKAEMIA
     Dosage: 25 MG, UNK
     Route: 065
  2. ENBREL [Suspect]
     Active Substance: ETANERCEPT
     Indication: MYELOID LEUKAEMIA
  3. ENBREL [Suspect]
     Active Substance: ETANERCEPT
     Indication: CHRONIC GRAFT VERSUS HOST DISEASE
  4. ENBREL [Suspect]
     Active Substance: ETANERCEPT
     Indication: IMMUNE SYSTEM DISORDER

REACTIONS (2)
  - Off label use [Unknown]
  - Rehabilitation therapy [Not Recovered/Not Resolved]
